FAERS Safety Report 15504729 (Version 2)
Quarter: 2018Q4

REPORT INFORMATION
  Report Type: Spontaneous
  Country: US (occurrence: US)
  Receive Date: 20181016
  Receipt Date: 20181016
  Transmission Date: 20190205
  Serious: No
  Sender: FDA-Public Use
  Company Number: US-SA-2018SA177097

PATIENT
  Age: 33 Year
  Sex: Female

DRUGS (1)
  1. GOLD BOND EXTRA STRENGTH [Suspect]
     Active Substance: MENTHOL
     Dosage: UNK
     Route: 065
     Dates: start: 20180619

REACTIONS (1)
  - Skin burning sensation [Unknown]

NARRATIVE: CASE EVENT DATE: 20180619
